FAERS Safety Report 8059590-2 (Version None)
Quarter: 2012Q1

REPORT INFORMATION
  Report Type: 
  Country: None (occurrence: None)
  Receive Date: 20120119
  Receipt Date: 20120119
  Transmission Date: 20120608
  Serious: Yes (Death, Hospitalization)
  Sender: FDA-Public Use
  Company Number: None

PATIENT
  Sex: Male
  Weight: 73.8 kg

DRUGS (9)
  1. AMLODIPINE [Concomitant]
  2. LEVITRA [Concomitant]
  3. SIMVASTATIN [Concomitant]
  4. METOPROLOL TARTRATE [Concomitant]
  5. ELOXATIN [Suspect]
     Dosage: 250 MG
  6. INSULIN [Concomitant]
  7. FLUOROURACIL [Suspect]
     Dosage: 8540 MG
     Dates: end: 20050411
  8. LEUCOVORIN CALCIUM [Suspect]
     Dosage: 1600 MG
  9. HYDROCHLOROTHIAZIDE [Concomitant]

REACTIONS (4)
  - PNEUMONIA [None]
  - ASTHENIA [None]
  - PANCYTOPENIA [None]
  - DECREASED APPETITE [None]
